FAERS Safety Report 23619198 (Version 3)
Quarter: 2025Q1

REPORT INFORMATION
  Report Type: Spontaneous
  Country: US (occurrence: US)
  Receive Date: 20240311
  Receipt Date: 20250128
  Transmission Date: 20250409
  Serious: Yes (Death, Hospitalization, Other)
  Sender: BIOMARIN
  Company Number: US-SA-SAC20240229000998

PATIENT

DRUGS (2)
  1. LARONIDASE [Suspect]
     Active Substance: LARONIDASE
     Indication: Mucopolysaccharidosis I
     Dosage: 5.8 (UNIT NOT KNOWN), QW
     Route: 042
     Dates: start: 20240226
  2. LARONIDASE [Suspect]
     Active Substance: LARONIDASE
     Dosage: 8.7 (UNITS NOT PROVIDED), QW
     Route: 042

REACTIONS (2)
  - Complications of bone marrow transplant [Fatal]
  - Cardiac disorder [Not Recovered/Not Resolved]

NARRATIVE: CASE EVENT DATE: 20240201
